FAERS Safety Report 6265324-4 (Version None)
Quarter: 2009Q3

REPORT INFORMATION
  Report Type: 
  Country: None (occurrence: None)
  Receive Date: 20090713
  Receipt Date: 20090708
  Transmission Date: 20100115
  Serious: Yes (Death, Hospitalization)
  Sender: FDA-Public Use
  Company Number: IT-ASTRAZENECA-2009SE04288

PATIENT
  Age: 26 Year
  Sex: Male
  Weight: 75 kg

DRUGS (1)
  1. PROPOFOL [Suspect]
     Route: 042

REACTIONS (7)
  - BRUGADA SYNDROME [None]
  - DRUG TOXICITY [None]
  - ELECTROCARDIOGRAM QT PROLONGED [None]
  - HYPOTENSION [None]
  - METABOLIC ACIDOSIS [None]
  - RHYTHM IDIOVENTRICULAR [None]
  - VENTRICULAR FIBRILLATION [None]
